FAERS Safety Report 4627496-4 (Version None)
Quarter: 2005Q1

REPORT INFORMATION
  Report Type: 
  Country: None (occurrence: None)
  Receive Date: 20050330
  Receipt Date: 20020409
  Transmission Date: 20050727
  Serious: No
  Sender: FDA-Public Use
  Company Number: 3576

PATIENT
  Age: 65 Year
  Sex: Male

DRUGS (2)
  1. MIDAZOLAM HCL [Suspect]
     Indication: SEDATION
     Dosage: 12 MG IT
     Route: 037
  2. BUPIVACAINE [Concomitant]

REACTIONS (6)
  - ABNORMAL BEHAVIOUR [None]
  - AGGRESSION [None]
  - DELIRIUM [None]
  - HEART RATE INCREASED [None]
  - MOVEMENT DISORDER [None]
  - PARADOXICAL DRUG REACTION [None]
